FAERS Safety Report 5981849-0 (Version None)
Quarter: 2008Q4

REPORT INFORMATION
  Report Type: 
  Country: None (occurrence: None)
  Receive Date: 20081202
  Receipt Date: 20081118
  Transmission Date: 20090506
  Serious: Yes (Hospitalization)
  Sender: FDA-Public Use
  Company Number: KV200800326

PATIENT
  Age: 74 Year
  Sex: Female
  Weight: 63.5 kg

DRUGS (1)
  1. MORPHINE SULFATE [Suspect]
     Indication: BACK PAIN
     Dosage: 15 MG, ONE TAB EVERY 4 HOURS, ORAL
     Route: 048
     Dates: start: 20080801, end: 20080901

REACTIONS (3)
  - INSOMNIA [None]
  - PRODUCT QUALITY ISSUE [None]
  - VOMITING [None]
